FAERS Safety Report 9646538 (Version 3)
Quarter: 2013Q4

REPORT INFORMATION
  Report Type: Report from Study
  Country: TW (occurrence: TW)
  Receive Date: 20131025
  Receipt Date: 20131111
  Transmission Date: 20140711
  Serious: Yes (Hospitalization)
  Sender: FDA-Public Use
  Company Number: TW-ABBVIE-13P-153-1159799-00

PATIENT
  Age: 62 Year
  Sex: Male
  Weight: 63 kg

DRUGS (1)
  1. HUMIRA [Suspect]
     Indication: RHEUMATOID ARTHRITIS
     Route: 058
     Dates: start: 20131002, end: 20131002

REACTIONS (3)
  - Scrotal disorder [Recovered/Resolved]
  - Nasopharyngitis [Recovering/Resolving]
  - Genital tract inflammation [Recovered/Resolved]
